FAERS Safety Report 24017479 (Version 2)
Quarter: 2025Q1

REPORT INFORMATION
  Report Type: Spontaneous
  Country: US (occurrence: US)
  Receive Date: 20240627
  Receipt Date: 20250131
  Transmission Date: 20250409
  Serious: No
  Sender: LUPIN
  Company Number: US-LUPIN PHARMACEUTICALS INC.-2024-05118

PATIENT

DRUGS (1)
  1. BUPROPION HYDROCHLORIDE XL [Suspect]
     Active Substance: BUPROPION HYDROCHLORIDE
     Indication: Sleep disorder
     Dosage: 1 DOSAGE FORM, QD, EVERY MORNING
     Route: 048

REACTIONS (7)
  - Abnormal behaviour [Unknown]
  - Circadian rhythm sleep disorder [Unknown]
  - Asthenia [Unknown]
  - Fatigue [Unknown]
  - Withdrawal syndrome [Unknown]
  - Therapeutic response changed [Unknown]
  - Product substitution issue [Unknown]
